FAERS Safety Report 14859619 (Version 4)
Quarter: 2022Q2

REPORT INFORMATION
  Report Type: Spontaneous
  Country: US (occurrence: US)
  Receive Date: 20180508
  Receipt Date: 20220608
  Transmission Date: 20220721
  Serious: No
  Sender: FDA-Public Use
  Company Number: US-PFIZER INC-2017541933

PATIENT
  Age: 43 Year
  Sex: Female

DRUGS (20)
  1. DOCETAXEL [Suspect]
     Active Substance: DOCETAXEL
     Indication: Triple positive breast cancer
     Dosage: 145 UNK, EVERY 3 WEEKS (6 CYCLES)
     Dates: start: 20121101, end: 20130213
  2. DOCETAXEL [Suspect]
     Active Substance: DOCETAXEL
     Dosage: 145 (UNSPECIFIED UNIT), CYCLIC (UNKNOWN CYCLES, EVERY 3 WEEKS)
     Dates: start: 20160602, end: 2016
  3. DOCETAXEL [Suspect]
     Active Substance: DOCETAXEL
     Indication: Breast cancer female
     Dosage: 145 UNK, EVERY 3 WEEKS (6 CYCLES)
     Dates: start: 20121101, end: 20130213
  4. DOCETAXEL [Suspect]
     Active Substance: DOCETAXEL
     Dosage: 145 (UNSPECIFIED UNIT), CYCLIC (UNKNOWN CYCLES, EVERY 3 WEEKS)
     Dates: start: 20160602, end: 2016
  5. NEOSAR [Concomitant]
     Active Substance: CYCLOPHOSPHAMIDE
     Indication: Chemotherapy
     Dosage: UNK
  6. ADRIAMYCIN [Concomitant]
     Active Substance: DOXORUBICIN HYDROCHLORIDE
     Indication: Chemotherapy
     Dosage: UNK
  7. DOXIL [Concomitant]
     Active Substance: DOXORUBICIN HYDROCHLORIDE
     Indication: Chemotherapy
     Dosage: UNK
  8. CYTOXAN [Concomitant]
     Active Substance: CYCLOPHOSPHAMIDE
     Indication: Chemotherapy
     Dosage: UNK
  9. PAXIL [Concomitant]
     Active Substance: PAROXETINE HYDROCHLORIDE
     Dosage: UNK
     Dates: start: 2012
  10. TRAZODONE [Concomitant]
     Active Substance: TRAZODONE HYDROCHLORIDE
     Dosage: UNK
  11. TEMAZEPAM [Concomitant]
     Active Substance: TEMAZEPAM
     Dosage: UNK
     Dates: end: 2012
  12. VICODIN [Concomitant]
     Active Substance: ACETAMINOPHEN\HYDROCODONE BITARTRATE
     Dosage: UNK
     Dates: start: 2012
  13. XANAX [Concomitant]
     Active Substance: ALPRAZOLAM
     Dosage: UNK
     Dates: end: 2012
  14. TAXOTERE [Concomitant]
     Active Substance: DOCETAXEL
     Dosage: UNK
  15. NEULASTA [Concomitant]
     Active Substance: PEGFILGRASTIM
     Indication: Chemotherapy
     Dosage: UNK
  16. ZOMETA [Concomitant]
     Active Substance: ZOLEDRONIC ACID
     Indication: Chemotherapy
     Dosage: UNK
     Dates: start: 2006
  17. LETROZOLE [Concomitant]
     Active Substance: LETROZOLE
     Indication: Hormone therapy
     Dosage: UNK
     Dates: start: 201708
  18. TAMOXIFEN [Concomitant]
     Active Substance: TAMOXIFEN
     Indication: Hormone therapy
     Dosage: UNK
     Dates: start: 201603, end: 201605
  19. IBRANCE [Concomitant]
     Active Substance: PALBOCICLIB
     Indication: Triple positive breast cancer
     Dosage: UNK
     Dates: start: 201712
  20. IBRANCE [Concomitant]
     Active Substance: PALBOCICLIB
     Indication: Hormone therapy

REACTIONS (8)
  - Alopecia [Not Recovered/Not Resolved]
  - Hair colour changes [Not Recovered/Not Resolved]
  - Hair disorder [Not Recovered/Not Resolved]
  - Hair texture abnormal [Not Recovered/Not Resolved]
  - Madarosis [Not Recovered/Not Resolved]
  - Anxiety [Unknown]
  - Depression [Unknown]
  - Self esteem decreased [Unknown]

NARRATIVE: CASE EVENT DATE: 20140813
